FAERS Safety Report 7770605-9 (Version None)
Quarter: 2011Q3

REPORT INFORMATION
  Report Type: 
  Country: None (occurrence: None)
  Receive Date: 20110922
  Receipt Date: 20110919
  Transmission Date: 20111222
  Serious: Yes (Other)
  Sender: FDA-Public Use
  Company Number: PHHY2011US83420

PATIENT
  Age: 69 Year
  Sex: Female

DRUGS (3)
  1. VITAMIN D [Concomitant]
     Dosage: 50000 IU, UNK
  2. STALEVO 100 [Suspect]
     Dosage: UNK UKN, UNK
     Dates: start: 20110913
  3. STALEVO 100 [Suspect]
     Indication: PARKINSON'S DISEASE
     Dosage: 150 MG, UNK
     Route: 048

REACTIONS (3)
  - DYSSTASIA [None]
  - PELVIC FRACTURE [None]
  - TREMOR [None]
